FAERS Safety Report 5245073-1 (Version None)
Quarter: 2007Q1

REPORT INFORMATION
  Report Type: 
  Country: None (occurrence: None)
  Receive Date: 20070223
  Receipt Date: 20061013
  Transmission Date: 20070707
  Serious: Yes (Hospitalization)
  Sender: FDA-Public Use
  Company Number: US-JNJFOC-20060402812

PATIENT
  Sex: Male
  Weight: 87.09 kg

DRUGS (9)
  1. RISPERDAL [Suspect]
     Route: 048
  2. RISPERDAL [Suspect]
     Route: 048
  3. RISPERDAL [Suspect]
     Route: 048
  4. RISPERDAL [Suspect]
     Route: 048
  5. RISPERDAL [Suspect]
     Indication: ANXIOLYTIC THERAPY
     Route: 048
  6. STRATTERA [Concomitant]
  7. ZYRTEC [Concomitant]
  8. CONCERTA [Concomitant]
     Route: 048
  9. PERIACTIN [Concomitant]

REACTIONS (2)
  - DIABETES MELLITUS INSULIN-DEPENDENT [None]
  - WEIGHT INCREASED [None]
